FAERS Safety Report 9072258 (Version 1)
Quarter: 2013Q1

REPORT INFORMATION
  Report Type: Spontaneous
  Country: US (occurrence: US)
  Receive Date: 20130206
  Receipt Date: 20130206
  Transmission Date: 20140127
  Serious: No
  Sender: FDA-Public Use
  Company Number: US-ALLERGAN-1217005US

PATIENT
  Age: 80 Year
  Sex: Female

DRUGS (5)
  1. RESTASIS? [Suspect]
     Indication: DRY EYE
     Dosage: 2 GTT, BID
     Route: 047
     Dates: start: 20121204
  2. OTC EYEDROP NOS [Concomitant]
     Indication: EYE LUBRICATION THERAPY
     Dosage: UNK, PRN
     Route: 047
     Dates: start: 2012
  3. AMBIEN [Concomitant]
     Indication: INSOMNIA
     Dosage: UNK UNK, QHS
     Route: 048
     Dates: start: 2012
  4. PREVACID [Concomitant]
     Indication: GASTROOESOPHAGEAL REFLUX DISEASE
     Dosage: UNK UNK, QD
     Route: 048
     Dates: start: 2012
  5. LESCOL                             /01224501/ [Concomitant]
     Indication: BLOOD CHOLESTEROL INCREASED
     Dosage: UNK
     Dates: end: 201211

REACTIONS (1)
  - Eye pruritus [Not Recovered/Not Resolved]
